FAERS Safety Report 9713962 (Version 2)
Quarter: 2015Q3

REPORT INFORMATION
  Report Type: Spontaneous
  Country: US (occurrence: US)
  Receive Date: 20131126
  Receipt Date: 20150803
  Transmission Date: 20151125
  Serious: No
  Sender: FDA-Public Use
  Company Number: US-GILEAD-2008-0018297

PATIENT
  Age: 71 Year
  Sex: Female

DRUGS (16)
  1. TRICOR [Concomitant]
     Active Substance: FENOFIBRATE
  2. SPIRONOLACTONE. [Concomitant]
     Active Substance: SPIRONOLACTONE
  3. POTASSIUM [Concomitant]
     Active Substance: POTASSIUM
  4. DIGOXIN. [Concomitant]
     Active Substance: DIGOXIN
  5. WARFARIN [Concomitant]
     Active Substance: WARFARIN
  6. LANTUS [Concomitant]
     Active Substance: INSULIN GLARGINE
  7. CALCIUM [Concomitant]
     Active Substance: CALCIUM
  8. TYLENOL [Concomitant]
     Active Substance: ACETAMINOPHEN
  9. METOPROLOL [Concomitant]
     Active Substance: METOPROLOL
  10. LETAIRIS [Suspect]
     Active Substance: AMBRISENTAN
     Indication: PULMONARY ARTERIAL HYPERTENSION
     Route: 048
     Dates: start: 20080827
  11. OMEGA 3 [Concomitant]
     Active Substance: OMEGA-3 FATTY ACIDS
  12. COMBIVENT [Concomitant]
     Active Substance: ALBUTEROL SULFATE\IPRATROPIUM BROMIDE
  13. LEVOTHROID [Concomitant]
     Active Substance: LEVOTHYROXINE SODIUM
  14. PREDNISONE. [Concomitant]
     Active Substance: PREDNISONE
  15. CRESTOR [Concomitant]
     Active Substance: ROSUVASTATIN CALCIUM
  16. ATENOLOL. [Concomitant]
     Active Substance: ATENOLOL

REACTIONS (1)
  - Headache [Recovered/Resolved]
